FAERS Safety Report 5690412-0 (Version None)
Quarter: 2008Q2

REPORT INFORMATION
  Report Type: 
  Country: None (occurrence: None)
  Receive Date: 20080401
  Receipt Date: 20080319
  Transmission Date: 20081010
  Serious: Yes (Hospitalization)
  Sender: FDA-Public Use
  Company Number: AU-AMGEN-QUU256182

PATIENT
  Sex: Female

DRUGS (4)
  1. NEULASTA [Suspect]
     Indication: CHEMOTHERAPY
     Route: 058
     Dates: start: 20070918
  2. FLUOROURACIL [Suspect]
     Dates: start: 20070918
  3. EPIRUBICIN [Suspect]
     Dates: start: 20070918
  4. CYCLOPHOSPHAMIDE [Suspect]
     Dates: start: 20070918

REACTIONS (1)
  - FEBRILE NEUTROPENIA [None]
